FAERS Safety Report 6715069-9 (Version None)
Quarter: 2010Q2

REPORT INFORMATION
  Report Type: 
  Country: None (occurrence: None)
  Receive Date: 20100506
  Receipt Date: 20100506
  Transmission Date: 20101027
  Serious: No
  Sender: FDA-Public Use
  Company Number: None

PATIENT
  Age: 40 Year
  Sex: Female
  Weight: 46.3 kg

DRUGS (7)
  1. PHENOL (CHLORASEPTIC SPRAY) [Suspect]
     Indication: SUICIDE ATTEMPT
     Dosage: ENTIRE BOTTLE - ONCE - PO
     Route: 048
     Dates: start: 20100220
  2. HEPARIN [Concomitant]
  3. APAP TAB [Concomitant]
  4. CEFAZOLIN [Concomitant]
  5. ASPART [Concomitant]
  6. VITAMIN E [Concomitant]
  7. ZINC OXIDE [Concomitant]

REACTIONS (3)
  - MENTAL STATUS CHANGES [None]
  - MULTIPLE DRUG OVERDOSE INTENTIONAL [None]
  - RESPIRATORY FAILURE [None]
